FAERS Safety Report 16458041 (Version 1)
Quarter: 2019Q2

REPORT INFORMATION
  Report Type: Spontaneous
  Country: US (occurrence: US)
  Receive Date: 20190620
  Receipt Date: 20190620
  Transmission Date: 20190711
  Serious: No
  Sender: FDA-Public Use
  Company Number: US-ZYDUS-034563

PATIENT
  Age: 36 Year
  Sex: Female

DRUGS (6)
  1. LEVOTHYROXINE. [Concomitant]
     Active Substance: LEVOTHYROXINE
     Indication: HYPOTHYROIDISM
     Route: 065
  2. OSELTAMIVIR/OSELTAMIVIR PHOSPHATE [Suspect]
     Active Substance: OSELTAMIVIR PHOSPHATE
     Indication: INFLUENZA LIKE ILLNESS
     Route: 048
     Dates: start: 20190219, end: 20190223
  3. METFORMIN [Concomitant]
     Active Substance: METFORMIN HYDROCHLORIDE
     Indication: POLYCYSTIC OVARIES
  4. DEXTROMETHORPHAN HYDROBROMIDE/PARACETAMOL/PSEUDOEPHEDRINE HYDROCHLORIDE [Concomitant]
     Indication: INFLUENZA LIKE ILLNESS
     Dates: start: 20190220
  5. PARACETAMOL [Concomitant]
     Active Substance: ACETAMINOPHEN
     Indication: PYREXIA
     Dates: start: 20190217, end: 20190219
  6. DEXTROMETHORPHAN HYDROBROMIDE/DOXYLAMINE SUCCINATE/EPHEDRINE SULFATE/ETHANOL/PARACETAMOL [Concomitant]
     Indication: INFLUENZA LIKE ILLNESS
     Dosage: AT NIGHT
     Dates: start: 20190219

REACTIONS (3)
  - Insomnia [Unknown]
  - Ageusia [Not Recovered/Not Resolved]
  - Pruritus [Recovered/Resolved]

NARRATIVE: CASE EVENT DATE: 201902
